FAERS Safety Report 10031367 (Version 3)
Quarter: 2014Q2

REPORT INFORMATION
  Report Type: Report from Study
  Country: GB (occurrence: GB)
  Receive Date: 20140324
  Receipt Date: 20140401
  Transmission Date: 20141212
  Serious: Yes (Other)
  Sender: FDA-Public Use
  Company Number: GB-ROCHE-1367941

PATIENT
  Age: 57 Year
  Sex: Male
  Weight: 85.5 kg

DRUGS (6)
  1. RITUXIMAB [Suspect]
     Indication: NON-HODGKIN^S LYMPHOMA
     Route: 042
     Dates: start: 20140212
  2. BENDAMUSTINE [Suspect]
     Indication: NON-HODGKIN^S LYMPHOMA
     Route: 042
     Dates: start: 20140214
  3. SERETIDE [Concomitant]
     Route: 065
     Dates: start: 20140213
  4. ACYCLOVIR [Concomitant]
     Route: 065
     Dates: start: 20140213
  5. IDELALISIB [Suspect]
     Indication: NON-HODGKIN^S LYMPHOMA
     Route: 048
     Dates: start: 20140212, end: 20140224
  6. IDELALISIB [Suspect]
     Route: 048
     Dates: end: 20140227

REACTIONS (1)
  - Alanine aminotransferase increased [Recovered/Resolved with Sequelae]
